FAERS Safety Report 10395656 (Version 1)
Quarter: 2014Q3

REPORT INFORMATION
  Report Type: Spontaneous
  Country: US (occurrence: None)
  Receive Date: 20140815
  Receipt Date: 20140815
  Transmission Date: 20150326
  Serious: Yes (Hospitalization)
  Sender: FDA-Public Use
  Company Number: None

PATIENT
  Age: 43 Year
  Sex: Female
  Weight: 86.36 kg

DRUGS (1)
  1. TAXOL [Suspect]
     Active Substance: PACLITAXEL
     Dates: start: 20140611

REACTIONS (12)
  - Nausea [None]
  - Small intestinal obstruction [None]
  - Dyspnoea [None]
  - Vomiting [None]
  - Ascites [None]
  - Hepatomegaly [None]
  - Staphylococcal infection [None]
  - Infection [None]
  - Intra-abdominal pressure increased [None]
  - Abdominal pain [None]
  - Ileus [None]
  - Metastatic neoplasm [None]

NARRATIVE: CASE EVENT DATE: 20140623
